FAERS Safety Report 13993349 (Version 1)
Quarter: 2017Q3

REPORT INFORMATION
  Report Type: Spontaneous
  Country: US (occurrence: US)
  Receive Date: 20170920
  Receipt Date: 20170920
  Transmission Date: 20171128
  Serious: No
  Sender: FDA-Public Use
  Company Number: US-PFIZER INC-2017404439

PATIENT

DRUGS (1)
  1. ADVIL MIGRAINE [Suspect]
     Active Substance: IBUPROFEN
     Indication: MIGRAINE
     Dosage: 1 DF, SINGLE

REACTIONS (6)
  - Heart rate increased [Unknown]
  - Anxiety [Unknown]
  - Nervousness [Unknown]
  - Hyperhidrosis [Unknown]
  - Tremor [Unknown]
  - Feeling jittery [Unknown]
